FAERS Safety Report 10615169 (Version 3)
Quarter: 2014Q4

REPORT INFORMATION
  Report Type: Report from Study
  Country: US (occurrence: US)
  Receive Date: 20141201
  Receipt Date: 20141219
  Transmission Date: 20150529
  Serious: Yes (Other)
  Sender: FDA-Public Use
  Company Number: PHEH2014US016738

PATIENT
  Sex: Female

DRUGS (3)
  1. AFINITOR [Suspect]
     Active Substance: EVEROLIMUS
     Dosage: 5 MG, QD
     Route: 048
  2. AFINITOR [Suspect]
     Active Substance: EVEROLIMUS
     Indication: HEPATIC NEOPLASM
     Dosage: 10 MG, QD
     Route: 048
     Dates: start: 20140801
  3. OCTREOTIDE [Suspect]
     Active Substance: OCTREOTIDE
     Indication: HEPATIC NEOPLASM
     Route: 065
     Dates: start: 201212

REACTIONS (10)
  - Feeling abnormal [Unknown]
  - Rash [Unknown]
  - Pruritus [Recovered/Resolved]
  - Skin exfoliation [Unknown]
  - Product use issue [Unknown]
  - Malaise [Unknown]
  - Skin disorder [Recovering/Resolving]
  - Neoplasm [Unknown]
  - Malignant neoplasm progression [Unknown]
  - Erythema [Recovered/Resolved]
